FAERS Safety Report 18713165 (Version 1)
Quarter: 2021Q1

REPORT INFORMATION
  Report Type: Spontaneous
  Country: US (occurrence: US)
  Receive Date: 20210107
  Receipt Date: 20210107
  Transmission Date: 20210419
  Serious: Yes (Other)
  Sender: FDA-Public Use
  Company Number: US-PFIZER INC-2021003297

PATIENT
  Age: 65 Year
  Sex: Male
  Weight: 98.43 kg

DRUGS (2)
  1. CELEBREX [Suspect]
     Active Substance: CELECOXIB
     Indication: ARTHRITIS
     Dosage: UNK UNK, 1X/DAY
  2. CELEBREX [Suspect]
     Active Substance: CELECOXIB
     Dosage: UNK UNK, 2X/DAY

REACTIONS (6)
  - Gastric disorder [Unknown]
  - Excessive cerumen production [Unknown]
  - Deafness [Not Recovered/Not Resolved]
  - Nausea [Unknown]
  - Ear disorder [Unknown]
  - Abdominal pain upper [Unknown]
